FAERS Safety Report 23793929 (Version 1)
Quarter: 2024Q2

REPORT INFORMATION
  Report Type: Spontaneous
  Country: US (occurrence: None)
  Receive Date: 20240426
  Receipt Date: 20240426
  Transmission Date: 20240715
  Serious: No
  Sender: FDA-Public Use
  Company Number: None

PATIENT
  Age: 76 Year
  Sex: Male
  Weight: 77 kg

DRUGS (1)
  1. ENOXAPARIN [Suspect]
     Active Substance: ENOXAPARIN
     Indication: Product used for unknown indication
     Dosage: FREQUENCY : TWICE A DAY;?
     Route: 058
     Dates: start: 20230414, end: 20230515

REACTIONS (5)
  - Haemorrhage [None]
  - Cerebral haemorrhage [None]
  - Mouth haemorrhage [None]
  - Weight decreased [None]
  - Blood blister [None]

NARRATIVE: CASE EVENT DATE: 20230516
